FAERS Safety Report 9156778 (Version 2)
Quarter: 2013Q1

REPORT INFORMATION
  Report Type: Spontaneous
  Country: None (occurrence: None)
  Receive Date: 20130206
  Receipt Date: 20130219
  Transmission Date: 20140127
  Serious: Yes (Hospitalization)
  Sender: FDA-Public Use
  Company Number: 2013DE0054

PATIENT
  Age: 60 Year
  Sex: Female
  Weight: 95 kg

DRUGS (2)
  1. KINERET [Suspect]
     Dosage: 100 MG (100 MG, 1 IN 1 D)
     Dates: start: 20090520, end: 20121213
  2. RAMIPRIL (RAMIPRIL) [Concomitant]

REACTIONS (1)
  - Subarachnoid haemorrhage [None]
